FAERS Safety Report 5422488-X (Version None)
Quarter: 2007Q3

REPORT INFORMATION
  Report Type: 
  Country: None (occurrence: None)
  Receive Date: 20070820
  Receipt Date: 20070815
  Transmission Date: 20080115
  Serious: Yes (Hospitalization, Other)
  Sender: FDA-Public Use
  Company Number: 2007SP015932

PATIENT
  Age: 65 Year
  Sex: Female
  Weight: 79 kg

DRUGS (1)
  1. TEMOZOLOIDE [Suspect]
     Indication: GLIOBLASTOMA MULTIFORME
     Dosage: 135 MG;QD;PO
     Route: 048
     Dates: start: 20070605, end: 20070717

REACTIONS (9)
  - BLOOD POTASSIUM DECREASED [None]
  - DEHYDRATION [None]
  - HAEMOGLOBIN DECREASED [None]
  - HYPOTENSION [None]
  - NEUTROPENIA [None]
  - NEUTROPHIL COUNT DECREASED [None]
  - ORTHOSTATIC HYPOTENSION [None]
  - THROMBOCYTOPENIA [None]
  - URINARY TRACT INFECTION [None]
